FAERS Safety Report 4439226-X (Version None)
Quarter: 2004Q3

REPORT INFORMATION
  Report Type: 
  Country: None (occurrence: None)
  Receive Date: 20040831
  Receipt Date: 20040728
  Transmission Date: 20050211
  Serious: Yes (Hospitalization)
  Sender: FDA-Public Use
  Company Number: HQWYE661030APR04

PATIENT
  Age: 70 Year
  Sex: Male
  Weight: 97.61 kg

DRUGS (7)
  1. NEUMEGA [Suspect]
     Dosage: SUBCUTANEOUS
     Route: 058
     Dates: start: 20040414
  2. PROCRIT [Suspect]
     Indication: ANAEMIA
     Dosage: 4000 IU ONCE WEEKLY,  START DATE 4-5 WEEKS AGO
  3. MAXZIDE [Concomitant]
  4. MICRONASE [Concomitant]
  5. AVANDIA [Concomitant]
  6. PRILOSEC [Concomitant]
  7. ALLOPURINOL [Concomitant]

REACTIONS (3)
  - CONCOMITANT DISEASE PROGRESSION [None]
  - OEDEMA PERIPHERAL [None]
  - THROMBOSIS [None]
